FAERS Safety Report 7091283-0 (Version None)
Quarter: 2010Q4

REPORT INFORMATION
  Report Type: 
  Country: None (occurrence: None)
  Receive Date: 20101109
  Receipt Date: 20101102
  Transmission Date: 20110411
  Serious: Yes (Death, Hospitalization)
  Sender: FDA-Public Use
  Company Number: IT-GENZYME-CLOF-1001089

PATIENT
  Sex: Male
  Weight: 60 kg

DRUGS (7)
  1. EVOLTRA [Suspect]
     Indication: ACUTE MYELOID LEUKAEMIA
     Dosage: 37 MG, QDX5
     Route: 042
     Dates: start: 20100201, end: 20100205
  2. TEMSIROLIMUS [Suspect]
     Indication: ACUTE MYELOID LEUKAEMIA
     Dosage: 25 MG, QD
     Route: 042
     Dates: start: 20100202, end: 20100202
  3. TEMSIROLIMUS [Suspect]
     Dosage: 25 MG, QD
     Route: 042
     Dates: start: 20100209, end: 20100209
  4. TEMSIROLIMUS [Suspect]
     Dosage: 25 MG, QD
     Route: 042
     Dates: start: 20100216, end: 20100216
  5. TEMSIROLIMUS [Suspect]
     Dosage: 25 MG, QD
     Route: 042
     Dates: start: 20100503, end: 20100503
  6. TEMSIROLIMUS [Suspect]
     Dosage: 25 MG, QD
     Route: 042
     Dates: start: 20100531, end: 20100531
  7. TEMSIROLIMUS [Suspect]
     Dosage: 25 MG, QD
     Route: 042
     Dates: start: 20100706, end: 20100706

REACTIONS (8)
  - ACUTE MYELOID LEUKAEMIA [None]
  - BACK PAIN [None]
  - CONFUSIONAL STATE [None]
  - FALL [None]
  - GASTROINTESTINAL HAEMORRHAGE [None]
  - MALIGNANT NEOPLASM PROGRESSION [None]
  - MENINGITIS [None]
  - OPTIC NEURITIS [None]
